FAERS Safety Report 23201281 (Version 1)
Quarter: 2023Q4

REPORT INFORMATION
  Report Type: Spontaneous
  Country: CZ (occurrence: CZ)
  Receive Date: 20231118
  Receipt Date: 20231118
  Transmission Date: 20240110
  Serious: Yes (Other)
  Sender: FDA-Public Use
  Company Number: CZ-TEVA-2023-CZ-2945384

PATIENT
  Age: 57 Year
  Sex: Female

DRUGS (2)
  1. PACLITAXEL [Suspect]
     Active Substance: PACLITAXEL
     Indication: Endometrial cancer
     Dosage: ADJUVANT CHEMOTHERAPY AND THREE CYCLES OF COMBINED CHEMOTHERAPY PACLITAXEL + CARBOPLATIN
     Route: 065
  2. CARBOPLATIN [Concomitant]
     Active Substance: CARBOPLATIN
     Indication: Endometrial cancer
     Dosage: ADJUVANT CHEMOTHERAPY AND THREE CYCLES OF COMBINED CHEMOTHERAPY PACLITAXEL + CARBOPLATIN
     Route: 065

REACTIONS (4)
  - Lymphopenia [Not Recovered/Not Resolved]
  - Pancytopenia [Recovered/Resolved]
  - Toxicity to various agents [Unknown]
  - Drug intolerance [Recovered/Resolved]
